FAERS Safety Report 23260915 (Version 1)
Quarter: 2023Q4

REPORT INFORMATION
  Report Type: Spontaneous
  Country: US (occurrence: US)
  Receive Date: 20231205
  Receipt Date: 20231205
  Transmission Date: 20240109
  Serious: No
  Sender: FDA-Public Use
  Company Number: US-CELLTRION INC.-2022US021408

PATIENT

DRUGS (3)
  1. TRUXIMA [Suspect]
     Active Substance: RITUXIMAB-ABBS
     Indication: Microscopic polyangiitis
     Dosage: 10 MG/ML
  2. TRUXIMA [Suspect]
     Active Substance: RITUXIMAB-ABBS
     Dosage: 1500 MG,FREQUENCY 0, 14
     Dates: start: 20210427
  3. TRUXIMA [Suspect]
     Active Substance: RITUXIMAB-ABBS
     Dosage: 500 MG NO FREQUENCY LISTED
     Dates: start: 20210511

REACTIONS (1)
  - Drug ineffective [Unknown]
